FAERS Safety Report 25764167 (Version 3)
Quarter: 2025Q4

REPORT INFORMATION
  Report Type: Report from Study
  Country: US (occurrence: US)
  Receive Date: 20250905
  Receipt Date: 20251215
  Transmission Date: 20260118
  Serious: No
  Sender: AVERITAS
  Company Number: US-GRUNENTHAL-2025-114084

PATIENT
  Sex: Female

DRUGS (2)
  1. QUTENZA [Suspect]
     Active Substance: CAPSAICIN
     Indication: Diabetic neuropathy
     Dosage: UNK, ONCE
     Route: 061
     Dates: start: 20250827, end: 20250827
  2. QUTENZA [Suspect]
     Active Substance: CAPSAICIN
     Dosage: UNK, ONCE
     Route: 061
     Dates: start: 20251201, end: 20251201

REACTIONS (3)
  - Pain in extremity [Unknown]
  - Pain [Unknown]
  - Burning sensation [Not Recovered/Not Resolved]
